FAERS Safety Report 6953907-5 (Version None)
Quarter: 2010Q3

REPORT INFORMATION
  Report Type: 
  Country: None (occurrence: None)
  Receive Date: 20100829
  Receipt Date: 20100629
  Transmission Date: 20110219
  Serious: No
  Sender: FDA-Public Use
  Company Number: US-ABBOTT-10P-163-0654320-00

PATIENT
  Sex: Female
  Weight: 83.99 kg

DRUGS (10)
  1. NIASPAN [Suspect]
     Indication: BLOOD TRIGLYCERIDES INCREASED
     Dosage: AT BEDTIME
     Dates: start: 20100615
  2. NIASPAN [Suspect]
     Dosage: AT BEDTIME
     Dates: start: 20100628
  3. PREMARIN [Concomitant]
     Indication: PRODUCT USED FOR UNKNOWN INDICATION
  4. POTASSIUM [Concomitant]
     Indication: PRODUCT USED FOR UNKNOWN INDICATION
  5. BENICAR [Concomitant]
     Indication: PRODUCT USED FOR UNKNOWN INDICATION
  6. FLAXSEED OIL [Concomitant]
     Indication: PRODUCT USED FOR UNKNOWN INDICATION
  7. GRAPESEED [Concomitant]
     Indication: PRODUCT USED FOR UNKNOWN INDICATION
  8. MULTI-VITAMIN [Concomitant]
     Indication: PRODUCT USED FOR UNKNOWN INDICATION
  9. XANAX [Concomitant]
     Indication: PRODUCT USED FOR UNKNOWN INDICATION
  10. NEXIUM [Concomitant]
     Indication: PRODUCT USED FOR UNKNOWN INDICATION

REACTIONS (5)
  - FLUSHING [None]
  - MUSCULOSKELETAL DISCOMFORT [None]
  - PRURITUS GENERALISED [None]
  - SKIN BURNING SENSATION [None]
  - URTICARIA [None]
